FAERS Safety Report 23578406 (Version 2)
Quarter: 2024Q1

REPORT INFORMATION
  Report Type: Spontaneous
  Country: US (occurrence: US)
  Receive Date: 20240229
  Receipt Date: 20240229
  Transmission Date: 20240410
  Serious: No
  Sender: FDA-Public Use
  Company Number: US-AMGEN-USASP2024041233

PATIENT
  Age: 65 Year
  Sex: Female

DRUGS (2)
  1. REPATHA [Suspect]
     Active Substance: EVOLOCUMAB
     Indication: Blood cholesterol increased
     Dosage: 420 MILLIGRAM/3.5ML, QMO
     Route: 065
     Dates: start: 202301
  2. REPATHA [Suspect]
     Active Substance: EVOLOCUMAB
     Dosage: 420 MILLIGRAM/3.5ML, QMO
     Route: 065

REACTIONS (4)
  - Accidental exposure to product [Unknown]
  - Product preparation error [Unknown]
  - Injection site discomfort [Unknown]
  - Urticaria [Unknown]

NARRATIVE: CASE EVENT DATE: 20240224
